FAERS Safety Report 17979013 (Version 1)
Quarter: 2020Q3

REPORT INFORMATION
  Report Type: Spontaneous
  Country: GB (occurrence: GB)
  Receive Date: 20200703
  Receipt Date: 20200703
  Transmission Date: 20201103
  Serious: Yes (Other)
  Sender: FDA-Public Use
  Company Number: GB-PFIZER INC-2020253986

PATIENT
  Age: 1 Month

DRUGS (1)
  1. PROPOFOL. [Suspect]
     Active Substance: PROPOFOL
     Indication: SEDATION
     Dosage: UNK, (INTRAVENOUS PROPOFOL INFUSION AT A RATE OF 10 MG/H)
     Route: 042

REACTIONS (1)
  - Hyperlipidaemia [Recovered/Resolved]
